FAERS Safety Report 13174897 (Version 1)
Quarter: 2017Q1

REPORT INFORMATION
  Report Type: Spontaneous
  Country: US (occurrence: US)
  Receive Date: 20170201
  Receipt Date: 20170201
  Transmission Date: 20170428
  Serious: No
  Sender: FDA-Public Use
  Company Number: US-ABBVIE-16K-163-1556857-00

PATIENT
  Age: 33 Year
  Sex: Female
  Weight: 70.37 kg

DRUGS (4)
  1. RIFAMPIN. [Concomitant]
     Active Substance: RIFAMPIN
     Indication: HIDRADENITIS
  2. HUMIRA [Suspect]
     Active Substance: ADALIMUMAB
     Indication: RHEUMATOID ARTHRITIS
     Route: 058
     Dates: start: 201512, end: 201601
  3. HUMIRA [Suspect]
     Active Substance: ADALIMUMAB
     Route: 058
     Dates: start: 201601
  4. CLINDAMYCIN. [Concomitant]
     Active Substance: CLINDAMYCIN
     Indication: HIDRADENITIS

REACTIONS (2)
  - Device issue [Unknown]
  - Rheumatoid arthritis [Recovering/Resolving]

NARRATIVE: CASE EVENT DATE: 201601
